FAERS Safety Report 9815724 (Version 3)
Quarter: 2014Q2

REPORT INFORMATION
  Report Type: Report from Study
  Country: US (occurrence: US)
  Receive Date: 20140114
  Receipt Date: 20140408
  Transmission Date: 20141212
  Serious: No
  Sender: FDA-Public Use
  Company Number: US-VERTEX PHARMACEUTICALS INC-2014-000149

PATIENT
  Age: 6 Year
  Sex: Female

DRUGS (11)
  1. VX-770 [Suspect]
     Indication: CYSTIC FIBROSIS
     Dosage: 150 MG, BID
     Route: 048
     Dates: start: 20131220
  2. PULMOZYME [Concomitant]
  3. ALBUTEROL [Concomitant]
  4. PREVACID [Concomitant]
  5. VITAMIN D2 [Concomitant]
  6. CREON [Concomitant]
  7. QVAR [Concomitant]
  8. OMNARIS [Concomitant]
  9. PERIACTIN [Concomitant]
  10. AQUADEKS [Concomitant]
  11. HYPERTONIC SALINE SOLUTION [Concomitant]

REACTIONS (5)
  - Musculoskeletal stiffness [Not Recovered/Not Resolved]
  - Upper-airway cough syndrome [Recovered/Resolved]
  - Nausea [Unknown]
  - Nasopharyngitis [Unknown]
  - Headache [Unknown]
